FAERS Safety Report 5853125-8 (Version None)
Quarter: 2008Q3

REPORT INFORMATION
  Report Type: 
  Country: None (occurrence: None)
  Receive Date: 20080821
  Receipt Date: 20080811
  Transmission Date: 20090109
  Serious: Yes (Other)
  Sender: FDA-Public Use
  Company Number: GB-GILEAD-2008-0017568

PATIENT
  Sex: Male

DRUGS (4)
  1. VIREAD [Suspect]
  2. REYATAZ [Suspect]
  3. RITONAVIR [Suspect]
  4. ABACAVIR [Suspect]

REACTIONS (1)
  - LOSS OF CONSCIOUSNESS [None]
